FAERS Safety Report 24233996 (Version 3)
Quarter: 2024Q3

REPORT INFORMATION
  Report Type: Spontaneous
  Country: US (occurrence: US)
  Receive Date: 20240821
  Receipt Date: 20240918
  Transmission Date: 20241016
  Serious: Yes (Hospitalization, Other)
  Sender: PFIZER
  Company Number: US-PFIZER INC-PV202400107281

PATIENT
  Age: 33 Year
  Sex: Male

DRUGS (1)
  1. XELJANZ XR [Suspect]
     Active Substance: TOFACITINIB CITRATE
     Indication: Rheumatoid arthritis
     Dosage: 11 MG

REACTIONS (9)
  - Chest pain [Unknown]
  - Drug ineffective [Not Recovered/Not Resolved]
  - Product dose omission issue [Unknown]
  - Headache [Unknown]
  - Diarrhoea [Unknown]
  - Peripheral swelling [Unknown]
  - Joint swelling [Unknown]
  - Swelling [Unknown]
  - Endocrine disorder [Not Recovered/Not Resolved]
